FAERS Safety Report 20017517 (Version 1)
Quarter: 2021Q4

REPORT INFORMATION
  Report Type: Report from Study
  Country: IN (occurrence: IN)
  Receive Date: 20211030
  Receipt Date: 20211030
  Transmission Date: 20220303
  Serious: Yes (Other)
  Sender: FDA-Public Use
  Company Number: IN-NOVARTISPH-PHHY2019IN189163

PATIENT
  Sex: Male

DRUGS (11)
  1. SECUKINUMAB [Suspect]
     Active Substance: SECUKINUMAB
     Indication: Psoriasis
     Dosage: UNK
     Route: 065
     Dates: start: 20190731
  2. SECUKINUMAB [Suspect]
     Active Substance: SECUKINUMAB
     Dosage: 300 MG, QW (VIAL)
     Route: 058
     Dates: start: 20190807
  3. SECUKINUMAB [Suspect]
     Active Substance: SECUKINUMAB
     Dosage: 300 MG, QW (VIAL)
     Route: 058
     Dates: start: 20190813
  4. SECUKINUMAB [Suspect]
     Active Substance: SECUKINUMAB
     Dosage: 300 MG, QW
     Route: 065
  5. SECUKINUMAB [Suspect]
     Active Substance: SECUKINUMAB
     Dosage: 300 MG
     Route: 065
     Dates: start: 20190916
  6. SECUKINUMAB [Suspect]
     Active Substance: SECUKINUMAB
     Dosage: 300 MG, QW
     Route: 058
     Dates: start: 20191006
  7. SECUKINUMAB [Suspect]
     Active Substance: SECUKINUMAB
     Dosage: 300 MG, QMO
     Route: 058
     Dates: start: 20191009
  8. SECUKINUMAB [Suspect]
     Active Substance: SECUKINUMAB
     Dosage: 300 UNK
     Route: 058
     Dates: start: 20191204
  9. SECUKINUMAB [Suspect]
     Active Substance: SECUKINUMAB
     Dosage: 300 MG, QMO
     Route: 058
     Dates: start: 20200613
  10. SECUKINUMAB [Suspect]
     Active Substance: SECUKINUMAB
     Dosage: 300 MG, 4 WEEKS
     Route: 058
     Dates: start: 20200617
  11. INSULIN NOS [Concomitant]
     Active Substance: INSULIN NOS
     Indication: Diabetes mellitus
     Dosage: UNK, TID (30)
     Route: 065

REACTIONS (8)
  - Inappropriate schedule of product administration [Unknown]
  - Skin lesion [Not Recovered/Not Resolved]
  - Joint stiffness [Unknown]
  - Pruritus [Not Recovered/Not Resolved]
  - Psoriasis [Unknown]
  - Skin exfoliation [Unknown]
  - Skin hypertrophy [Unknown]
  - Drug ineffective [Unknown]
